FAERS Safety Report 6811835-X (Version None)
Quarter: 2010Q2

REPORT INFORMATION
  Report Type: 
  Country: None (occurrence: None)
  Receive Date: 20100628
  Receipt Date: 20100617
  Transmission Date: 20101027
  Serious: Yes (Disabling)
  Sender: FDA-Public Use
  Company Number: 2008JP001233

PATIENT
  Age: 39 Year
  Sex: Female
  Weight: 61 kg

DRUGS (26)
  1. TACROLIMUS [Suspect]
     Indication: LUPUS NEPHRITIS
     Dosage: 3 MG, /D, ORAL; 1 MG, /D, ORAL; 2 MG, /D, ORAL
     Route: 048
     Dates: start: 20070213, end: 20080218
  2. TACROLIMUS [Suspect]
     Indication: LUPUS NEPHRITIS
     Dosage: 3 MG, /D, ORAL; 1 MG, /D, ORAL; 2 MG, /D, ORAL
     Route: 048
     Dates: start: 20080313, end: 20080822
  3. TACROLIMUS [Suspect]
     Indication: LUPUS NEPHRITIS
     Dosage: 3 MG, /D, ORAL; 1 MG, /D, ORAL; 2 MG, /D, ORAL
     Route: 048
     Dates: start: 20081204, end: 20090527
  4. TACROLIMUS [Suspect]
     Indication: LUPUS NEPHRITIS
     Dosage: 3 MG, /D, ORAL; 1 MG, /D, ORAL; 2 MG, /D, ORAL
     Route: 048
     Dates: start: 20090528, end: 20090826
  5. TACROLIMUS [Suspect]
     Indication: LUPUS NEPHRITIS
     Dosage: 3 MG, /D, ORAL; 1 MG, /D, ORAL; 2 MG, /D, ORAL
     Route: 048
     Dates: start: 20090827
  6. PREDNISOLONE [Suspect]
     Indication: LUPUS NEPHRITIS
     Dosage: SEE IMAGE
     Route: 048
     Dates: start: 20070112, end: 20070125
  7. PREDNISOLONE [Suspect]
     Indication: LUPUS NEPHRITIS
     Dosage: SEE IMAGE
     Route: 048
     Dates: start: 20070126, end: 20070129
  8. PREDNISOLONE [Suspect]
     Indication: LUPUS NEPHRITIS
     Dosage: SEE IMAGE
     Route: 048
     Dates: start: 20070130, end: 20070212
  9. PREDNISOLONE [Suspect]
     Indication: LUPUS NEPHRITIS
     Dosage: SEE IMAGE
     Route: 048
     Dates: start: 20070213, end: 20070303
  10. PREDNISOLONE [Suspect]
     Indication: LUPUS NEPHRITIS
     Dosage: SEE IMAGE
     Route: 048
     Dates: start: 20070304, end: 20070613
  11. PREDNISOLONE [Suspect]
     Indication: LUPUS NEPHRITIS
     Dosage: SEE IMAGE
     Route: 048
     Dates: start: 20070614, end: 20080312
  12. PREDNISOLONE [Suspect]
     Indication: LUPUS NEPHRITIS
     Dosage: SEE IMAGE
     Route: 048
     Dates: start: 20080312, end: 20080730
  13. PREDNISOLONE [Suspect]
     Indication: LUPUS NEPHRITIS
     Dosage: SEE IMAGE
     Route: 048
     Dates: start: 20080731, end: 20080825
  14. PREDNISOLONE [Suspect]
     Indication: LUPUS NEPHRITIS
     Dosage: SEE IMAGE
     Route: 048
     Dates: start: 20080826, end: 20081020
  15. PREDNISOLONE [Suspect]
     Indication: LUPUS NEPHRITIS
     Dosage: SEE IMAGE
     Route: 048
     Dates: start: 20020901
  16. PREDNISOLONE [Suspect]
     Indication: LUPUS NEPHRITIS
     Dosage: SEE IMAGE
     Route: 048
     Dates: start: 20081021
  17. CANDESARTAN CILEXETIL [Concomitant]
  18. ADALAT CC [Concomitant]
  19. SELBEX (TEPRENONE) [Concomitant]
  20. DOXAZOSIN MESYLATE [Concomitant]
  21. BEZATOL (BEZAFIBRATE) [Concomitant]
  22. BAKTAR (SULFAMETHOXAZOLE, TRIMETHOPRIM) TABLET [Concomitant]
  23. FERRUM (FERROUS GLUCONATE) [Concomitant]
  24. NEORAL [Concomitant]
  25. PERSANTIN [Concomitant]
  26. EPADEL-S (ETHYL ICOSAPENTATE) [Concomitant]

REACTIONS (5)
  - AUTOIMMUNE DISORDER [None]
  - ENTERITIS INFECTIOUS [None]
  - OSTEONECROSIS [None]
  - PANNICULITIS [None]
  - PYELONEPHRITIS [None]
